FAERS Safety Report 23669125 (Version 1)
Quarter: 2024Q1

REPORT INFORMATION
  Report Type: Spontaneous
  Country: US (occurrence: None)
  Receive Date: 20240325
  Receipt Date: 20240325
  Transmission Date: 20240409
  Serious: Yes (unspecified)
  Sender: FDA-Public Use
  Company Number: None

PATIENT
  Age: 43 Year
  Sex: Female

DRUGS (1)
  1. CORTICOTROPIN [Suspect]
     Active Substance: CORTICOTROPIN
     Indication: Behcet^s syndrome
     Dosage: 4000MG QD INJECTBLE
     Dates: start: 20230117

REACTIONS (5)
  - Pruritus [None]
  - Erythema [None]
  - Swelling face [None]
  - Injection site swelling [None]
  - Product substitution issue [None]

NARRATIVE: CASE EVENT DATE: 20240325
